FAERS Safety Report 9357675 (Version 1)
Quarter: 2013Q2

REPORT INFORMATION
  Report Type: Spontaneous
  Country: US (occurrence: US)
  Receive Date: 20130620
  Receipt Date: 20130620
  Transmission Date: 20140414
  Serious: Yes (Other)
  Sender: FDA-Public Use
  Company Number: US-PFIZER INC-2013183620

PATIENT
  Age: 33 Year
  Sex: Female

DRUGS (4)
  1. FELDENE [Suspect]
     Indication: ARTHRITIS
     Dosage: UNK
  2. FELDENE [Suspect]
     Indication: ARTHRALGIA
  3. NAPROXEN [Suspect]
     Indication: ARTHRITIS
     Dosage: UNK
  4. NAPROXEN [Suspect]
     Indication: ARTHRALGIA

REACTIONS (5)
  - Fracture malunion [Unknown]
  - Road traffic accident [Unknown]
  - Foot fracture [Unknown]
  - Intervertebral disc protrusion [Unknown]
  - Drug ineffective [Unknown]
